FAERS Safety Report 9067502 (Version 2)
Quarter: 2013Q2

REPORT INFORMATION
  Report Type: Spontaneous
  Country: BR (occurrence: BR)
  Receive Date: 20130129
  Receipt Date: 20130405
  Transmission Date: 20140414
  Serious: Yes (Death, Other)
  Sender: FDA-Public Use
  Company Number: PHHY2013BR006908

PATIENT
  Sex: Female

DRUGS (1)
  1. DIOVAN AMLO FIX [Suspect]

REACTIONS (5)
  - Death [Fatal]
  - Cerebrovascular accident [Recovering/Resolving]
  - Diabetes mellitus [Recovering/Resolving]
  - Obesity [Recovering/Resolving]
  - Blood pressure increased [Recovering/Resolving]
